FAERS Safety Report 14863573 (Version 1)
Quarter: 2018Q2

REPORT INFORMATION
  Report Type: Spontaneous
  Country: CA (occurrence: CA)
  Receive Date: 20180508
  Receipt Date: 20180508
  Transmission Date: 20180711
  Serious: Yes (Death, Life-Threatening, Hospitalization, Other)
  Sender: FDA-Public Use
  Company Number: CA-TEVA-2018-CA-888512

PATIENT
  Age: 37 Year
  Sex: Female

DRUGS (2)
  1. TEVA-PROGESTERONE [Suspect]
     Active Substance: PROGESTERONE
     Indication: INFERTILITY FEMALE
     Route: 048
  2. LUPIN-ESTRADIOL [Suspect]
     Active Substance: ESTRADIOL
     Indication: INFERTILITY FEMALE
     Route: 065

REACTIONS (1)
  - Cerebrovascular accident [Fatal]
